FAERS Safety Report 7724512-8 (Version None)
Quarter: 2011Q3

REPORT INFORMATION
  Report Type: 
  Country: None (occurrence: None)
  Receive Date: 20110901
  Receipt Date: 20110728
  Transmission Date: 20111222
  Serious: Yes (Hospitalization)
  Sender: FDA-Public Use
  Company Number: ES-GLAXOSMITHKLINE-B0737516A

PATIENT
  Sex: Female
  Weight: 80 kg

DRUGS (5)
  1. VOTRIENT [Suspect]
     Indication: OVARIAN NEOPLASM
     Dosage: 800MG PER DAY
     Route: 048
     Dates: start: 20110506, end: 20110719
  2. PRIMPERAN TAB [Concomitant]
     Indication: PROPHYLAXIS OF NAUSEA AND VOMITING
     Dosage: 10MG THREE TIMES PER DAY
     Route: 048
     Dates: start: 20101122
  3. OMEPRAZOLE [Concomitant]
     Indication: PROPHYLAXIS
     Dosage: 20MG PER DAY
     Route: 048
     Dates: start: 20110302
  4. DICLOFENAC SODIUM [Concomitant]
     Indication: PAIN PROPHYLAXIS
     Dosage: 50MG THREE TIMES PER DAY
     Route: 048
     Dates: start: 20110711
  5. ACETAMINOPHEN [Concomitant]
     Indication: PAIN PROPHYLAXIS
     Dosage: 500MG THREE TIMES PER DAY
     Route: 048
     Dates: start: 20101021

REACTIONS (1)
  - ENTEROCUTANEOUS FISTULA [None]
